FAERS Safety Report 12528976 (Version 10)
Quarter: 2018Q2

REPORT INFORMATION
  Report Type: Report from Study
  Country: US (occurrence: US)
  Receive Date: 20160705
  Receipt Date: 20180619
  Transmission Date: 20180711
  Serious: Yes (Death, Hospitalization, Other)
  Sender: FDA-Public Use
  Company Number: US-ACTELION-A-US2016-137215

PATIENT
  Age: 78 Year
  Sex: Female
  Weight: 54.42 kg

DRUGS (6)
  1. VELETRI [Suspect]
     Active Substance: EPOPROSTENOL
     Indication: PULMONARY ARTERIAL HYPERTENSION
     Dosage: 10 NG/KG, PER MIN
     Route: 042
     Dates: start: 20160523
  2. VELETRI [Suspect]
     Active Substance: EPOPROSTENOL
     Dosage: 40 NG/KG, PER MIN
     Route: 042
  3. VELETRI [Suspect]
     Active Substance: EPOPROSTENOL
     Dosage: 39 NG/KG, PER MIN
     Route: 042
  4. VELETRI [Suspect]
     Active Substance: EPOPROSTENOL
     Dosage: 41 NG/KG PER MIN
     Route: 042
  5. VELETRI [Suspect]
     Active Substance: EPOPROSTENOL
     Dosage: 49 NG/KG, PER MIN
     Route: 042
  6. VELETRI [Suspect]
     Active Substance: EPOPROSTENOL
     Dosage: 47 NG/KG PER MIN
     Route: 042

REACTIONS (25)
  - Pleural effusion [Unknown]
  - Cough [Unknown]
  - Death [Fatal]
  - Device damage [Unknown]
  - Oxygen therapy [Unknown]
  - Hyperkalaemia [Unknown]
  - Pain in jaw [Unknown]
  - Chest tube insertion [Unknown]
  - Splenomegaly [Unknown]
  - Night sweats [Unknown]
  - Fluid retention [Unknown]
  - Transfusion [Unknown]
  - Constipation [Unknown]
  - Faeces soft [Unknown]
  - Platelet count increased [Unknown]
  - Dyspnoea [Unknown]
  - Pulmonary hypertension [Unknown]
  - Bowel movement irregularity [Unknown]
  - Swelling [Unknown]
  - Abdominal cavity drainage [Unknown]
  - Infusion site discolouration [Unknown]
  - Skin burning sensation [Unknown]
  - Device infusion issue [Unknown]
  - Rash pruritic [Unknown]
  - Diarrhoea [Not Recovered/Not Resolved]

NARRATIVE: CASE EVENT DATE: 20180606
